FAERS Safety Report 6867981-8 (Version None)
Quarter: 2010Q3

REPORT INFORMATION
  Report Type: 
  Country: None (occurrence: None)
  Receive Date: 20100722
  Receipt Date: 20080508
  Transmission Date: 20110219
  Serious: No
  Sender: FDA-Public Use
  Company Number: US-PFIZER INC-2008041085

PATIENT
  Sex: Female
  Weight: 66.8 kg

DRUGS (4)
  1. CHANTIX [Suspect]
     Indication: SMOKING CESSATION THERAPY
     Dates: start: 20080101
  2. CARBATROL [Concomitant]
  3. ZONEGRAN [Concomitant]
  4. ZOLOFT [Concomitant]

REACTIONS (1)
  - LIP DISORDER [None]
